FAERS Safety Report 14047102 (Version 1)
Quarter: 2017Q4

REPORT INFORMATION
  Report Type: Spontaneous
  Country: US (occurrence: US)
  Receive Date: 20171005
  Receipt Date: 20171005
  Transmission Date: 20180321
  Serious: No
  Sender: FDA-Public Use
  Company Number: US-BAYER-2017-191352

PATIENT
  Age: 74 Year
  Sex: Male
  Weight: 98 kg

DRUGS (2)
  1. EYE DROPS [Concomitant]
     Active Substance: UNSPECIFIED INGREDIENT
  2. MIRALAX [Suspect]
     Active Substance: POLYETHYLENE GLYCOL 3350
     Indication: GASTROINTESTINAL DISORDER
     Dosage: ;1 CAP FULL ONCE A DAY IN 8OZ WATER. DOSE, PRN
     Route: 048

REACTIONS (4)
  - Abnormal faeces [Unknown]
  - Poor quality drug administered [Unknown]
  - Product solubility abnormal [Unknown]
  - Product quality issue [Unknown]
